FAERS Safety Report 25272531 (Version 1)
Quarter: 2025Q2

REPORT INFORMATION
  Report Type: Spontaneous
  Country: GB (occurrence: GB)
  Receive Date: 20250506
  Receipt Date: 20250506
  Transmission Date: 20250716
  Serious: Yes (Disabling, Other)
  Sender: SAMSUNG BIOEPIS
  Company Number: GB-MHRA-TPP25993755C8307781YC1745500726121

PATIENT
  Age: 84 Year
  Sex: Male
  Weight: 73 kg

DRUGS (14)
  1. IMRALDI [Suspect]
     Active Substance: ADALIMUMAB
     Indication: Rheumatoid arthritis
     Dates: start: 20250424
  2. MACROGOL COMPOUND [Concomitant]
     Indication: Ill-defined disorder
     Dosage: TAKE ONE SACHET TWICE A DAY AS NEEDED TO REGULA...
     Dates: start: 20250221, end: 20250323
  3. MORPHINE SULFATE [Concomitant]
     Active Substance: MORPHINE SULFATE
     Indication: Ill-defined disorder
     Dosage: 2.5-5ML UP TO FOUR TIMES A DAY (NO MORE THAN 20...;
     Dates: start: 20250221, end: 20250226
  4. BIOCATH HYDROGEL COATED [Concomitant]
     Indication: Ill-defined disorder
     Dates: start: 20250228, end: 20250301
  5. ACETAMINOPHEN [Concomitant]
     Active Substance: ACETAMINOPHEN
     Indication: Ill-defined disorder
     Route: 048
     Dates: start: 20250228, end: 20250304
  6. CLOBETASOL [Concomitant]
     Active Substance: CLOBETASOL
     Indication: Ill-defined disorder
     Dosage: APPLY ONCE A DAY SPARINGLY - NEVER ON THE FACE;
     Route: 061
     Dates: start: 20250303, end: 20250331
  7. ADCAL [Concomitant]
     Indication: Ill-defined disorder
     Dosage: AS CALCIUM AND VITAMIN DAY;
     Route: 048
     Dates: start: 20241203
  8. AMLODIPINE [Concomitant]
     Active Substance: AMLODIPINE BESYLATE
     Indication: Hypertension
     Dosage: IN THE MORNING TO REDUCE BLOOD ...;
     Route: 048
     Dates: start: 20241203
  9. ATORVASTATIN [Concomitant]
     Active Substance: ATORVASTATIN
     Indication: Blood cholesterol increased
     Dosage: TO LOWER CHOLESTEROL;
     Route: 048
     Dates: start: 20241203
  10. CANDESARTAN [Concomitant]
     Active Substance: CANDESARTAN
     Indication: Hypertension
     Dosage: FOR BLOOD PRESSURE;
     Route: 048
     Dates: start: 20241203
  11. MINERAL OIL\PARAFFIN [Concomitant]
     Active Substance: MINERAL OIL\PARAFFIN
     Indication: Dry skin
     Route: 061
     Dates: start: 20241203
  12. OMEPRAZOLE [Concomitant]
     Active Substance: OMEPRAZOLE
     Indication: Dyspepsia
     Dosage: INDIGESTION/ PREVENT ULCER A...
     Route: 048
     Dates: start: 20241203
  13. OMEPRAZOLE [Concomitant]
     Active Substance: OMEPRAZOLE
     Indication: Prophylaxis against gastrointestinal ulcer
  14. PREDNISOLONE [Concomitant]
     Active Substance: PREDNISOLONE
     Indication: Ill-defined disorder
     Dosage: EACH MORNING;
     Dates: start: 20241203

REACTIONS (4)
  - Blood pressure increased [Recovered/Resolved]
  - Heart rate increased [Recovered/Resolved]
  - Nervousness [Recovered/Resolved]
  - Malaise [Unknown]

NARRATIVE: CASE EVENT DATE: 20250424
